FAERS Safety Report 6988561-X (Version None)
Quarter: 2010Q3

REPORT INFORMATION
  Report Type: 
  Country: None (occurrence: None)
  Receive Date: 20100827
  Receipt Date: 20100526
  Transmission Date: 20110219
  Serious: Yes (Life-Threatening)
  Sender: FDA-Public Use
  Company Number: 004980

PATIENT
  Sex: Male
  Weight: 72.5 kg

DRUGS (3)
  1. LACOSAMIDE [Suspect]
     Indication: CONVULSION
     Dosage: 200 MG BID, 4 PILLS BID ORAL, 100 MG BID, 2 PILLS BID ORAL
     Route: 048
     Dates: start: 20091001, end: 20090101
  2. LACOSAMIDE [Suspect]
     Indication: CONVULSION
     Dosage: 200 MG BID, 4 PILLS BID ORAL, 100 MG BID, 2 PILLS BID ORAL
     Route: 048
     Dates: start: 20090101
  3. KLONOPIN [Concomitant]

REACTIONS (2)
  - IRRITABILITY [None]
  - SUICIDAL IDEATION [None]
